FAERS Safety Report 20749370 (Version 3)
Quarter: 2022Q2

REPORT INFORMATION
  Report Type: Report from Study
  Country: CA (occurrence: CA)
  Receive Date: 20220426
  Receipt Date: 20220517
  Transmission Date: 20220721
  Serious: Yes (Death, Hospitalization)
  Sender: FDA-Public Use
  Company Number: CA-FERRINGPH-2022FE00520

PATIENT

DRUGS (2)
  1. DEGARELIX [Suspect]
     Active Substance: DEGARELIX
     Indication: Hormone-dependent prostate cancer
     Dosage: 80 MG, MONTHLY
     Route: 065
     Dates: start: 20210511, end: 20220406
  2. DEGARELIX [Suspect]
     Active Substance: DEGARELIX
     Dosage: 240 MG, ONCE/SINGLE
     Route: 065
     Dates: start: 20210413, end: 20210413

REACTIONS (4)
  - Metastasis [Fatal]
  - Pain [Unknown]
  - Dyspnoea [Unknown]
  - Injection site mass [Recovering/Resolving]

NARRATIVE: CASE EVENT DATE: 20220101
